FAERS Safety Report 9664069 (Version 1)
Quarter: 2013Q4

REPORT INFORMATION
  Report Type: Spontaneous
  Country: BR (occurrence: BR)
  Receive Date: 20131101
  Receipt Date: 20131101
  Transmission Date: 20140711
  Serious: Yes (Hospitalization, Other)
  Sender: FDA-Public Use
  Company Number: BR-PFIZER INC-2013308776

PATIENT
  Age: 84 Year
  Sex: Female
  Weight: 65 kg

DRUGS (2)
  1. XALATAN [Suspect]
     Indication: GLAUCOMA
     Dosage: UNK
     Route: 047
     Dates: start: 2001
  2. XALATAN [Suspect]
     Dosage: 1 DROP IN EACH EYE (3 UG), 2X/DAY
     Route: 047
     Dates: start: 2010

REACTIONS (4)
  - Fall [Unknown]
  - Femur fracture [Unknown]
  - Cerebrovascular accident [Unknown]
  - Incorrect dose administered [Not Recovered/Not Resolved]
